FAERS Safety Report 10350582 (Version 2)
Quarter: 2014Q3

REPORT INFORMATION
  Report Type: Spontaneous
  Country: US (occurrence: US)
  Receive Date: 20140730
  Receipt Date: 20140730
  Transmission Date: 20150326
  Serious: No
  Sender: FDA-Public Use
  Company Number: US-BRISTOL-MYERS SQUIBB COMPANY-21061437

PATIENT
  Age: 45 Year
  Sex: Male

DRUGS (1)
  1. FARXIGA [Suspect]
     Active Substance: DAPAGLIFLOZIN PROPANEDIOL
     Dosage: 4 INJECTIONS

REACTIONS (1)
  - Urine output increased [Unknown]
